FAERS Safety Report 8100652-9 (Version None)
Quarter: 2012Q1

REPORT INFORMATION
  Report Type: 
  Country: None (occurrence: None)
  Receive Date: 20120131
  Receipt Date: 20120117
  Transmission Date: 20120608
  Serious: Yes (Other)
  Sender: FDA-Public Use
  Company Number: CA-JNJFOC-20120112591

PATIENT
  Sex: Female
  Weight: 54.43 kg

DRUGS (5)
  1. REMICADE [Suspect]
     Indication: ANKYLOSING SPONDYLITIS
     Route: 042
     Dates: start: 20070101
  2. IMURAN [Concomitant]
     Route: 065
  3. REMICADE [Suspect]
     Indication: CROHN'S DISEASE
     Route: 042
     Dates: start: 20070101
  4. ALL OTHER THERAPEUTIC PRODUCTS [Concomitant]
     Indication: ANKYLOSING SPONDYLITIS
     Route: 065
  5. PROBIOTICS [Concomitant]
     Route: 065

REACTIONS (2)
  - MALAISE [None]
  - ANAL FISTULA [None]
